FAERS Safety Report 12473384 (Version 2)
Quarter: 2016Q3

REPORT INFORMATION
  Report Type: Spontaneous
  Country: US (occurrence: US)
  Receive Date: 20160616
  Receipt Date: 20160704
  Transmission Date: 20161109
  Serious: No
  Sender: FDA-Public Use
  Company Number: US-ASTRAZENECA-2016SE65720

PATIENT
  Sex: Female

DRUGS (1)
  1. NEXIUM 24HR [Suspect]
     Active Substance: ESOMEPRAZOLE MAGNESIUM
     Indication: ERUCTATION
     Dosage: UNK
     Route: 048

REACTIONS (5)
  - Therapy cessation [Unknown]
  - Product use issue [Unknown]
  - Flatulence [Unknown]
  - Drug ineffective for unapproved indication [Unknown]
  - Malabsorption [Unknown]
